FAERS Safety Report 6461771-6 (Version None)
Quarter: 2009Q4

REPORT INFORMATION
  Report Type: 
  Country: None (occurrence: None)
  Receive Date: 20091123
  Receipt Date: 20091111
  Transmission Date: 20100525
  Serious: Yes (Other)
  Sender: FDA-Public Use
  Company Number: 236066K09USA

PATIENT
  Age: 58 Year
  Sex: Female

DRUGS (3)
  1. REBIF [Suspect]
     Indication: MULTIPLE SCLEROSIS
     Dosage: 44 MCG, 3 IN 1 WEEKS, SUBCUTANEOUS
     Route: 058
     Dates: start: 20080506, end: 20090330
  2. DIOVAN [Concomitant]
  3. BONIVA [Concomitant]

REACTIONS (4)
  - RETINAL DETACHMENT [None]
  - RETINAL SCAR [None]
  - VASCULAR RUPTURE [None]
  - VISUAL IMPAIRMENT [None]
